FAERS Safety Report 15672092 (Version 4)
Quarter: 2019Q3

REPORT INFORMATION
  Report Type: Report from Study
  Country: US (occurrence: US)
  Receive Date: 20181129
  Receipt Date: 20190908
  Transmission Date: 20191004
  Serious: Yes (Other)
  Sender: FDA-Public Use
  Company Number: US-TESARO-US-2018TSO03121

PATIENT
  Age: 70 Year
  Sex: Female

DRUGS (5)
  1. ZEJULA [Suspect]
     Active Substance: NIRAPARIB
     Indication: OVARIAN CANCER
     Dosage: 300 MG, QD
     Route: 048
     Dates: start: 201708
  2. ZEJULA [Suspect]
     Active Substance: NIRAPARIB
     Dosage: 200 MG, PM WITHOUT FOOD
     Route: 048
     Dates: start: 20190810
  3. ZEJULA [Suspect]
     Active Substance: NIRAPARIB
     Dosage: 200 MG, QD
     Route: 048
     Dates: start: 20180716
  4. ELIQUIS [Suspect]
     Active Substance: APIXABAN
     Indication: PULMONARY EMBOLISM
     Dosage: 5 MG, BID
     Route: 065
     Dates: start: 201711
  5. LIPITOR [Concomitant]
     Active Substance: ATORVASTATIN CALCIUM
     Indication: PRODUCT USED FOR UNKNOWN INDICATION
     Dosage: 10 MG, HS (BEDTIME)
     Route: 065

REACTIONS (12)
  - Weight decreased [Unknown]
  - Bladder prolapse [Not Recovered/Not Resolved]
  - Red blood cell count decreased [Recovered/Resolved]
  - Bacterial infection [Recovered/Resolved]
  - Faeces hard [Recovered/Resolved]
  - White blood cell count decreased [Recovered/Resolved]
  - Blood pressure increased [Recovered/Resolved]
  - Glucose tolerance impaired [Unknown]
  - Platelet count decreased [Recovered/Resolved]
  - Rectal haemorrhage [Recovered/Resolved]
  - Proctalgia [Recovered/Resolved]
  - Nasopharyngitis [Unknown]

NARRATIVE: CASE EVENT DATE: 20180712
